FAERS Safety Report 14424336 (Version 1)
Quarter: 2018Q1

REPORT INFORMATION
  Report Type: Spontaneous
  Country: JP (occurrence: JP)
  Receive Date: 20180123
  Receipt Date: 20180123
  Transmission Date: 20180509
  Serious: Yes (Other)
  Sender: FDA-Public Use
  Company Number: JP-JNJFOC-20180123742

PATIENT
  Age: 93 Year
  Sex: Female

DRUGS (4)
  1. MAGNESIUM OXIDE. [Concomitant]
     Active Substance: MAGNESIUM OXIDE
     Route: 048
  2. POLAPREZINC [Concomitant]
     Active Substance: POLAPREZINC
     Route: 048
  3. TOCOPHEROL [Concomitant]
     Active Substance: TOCOPHEROL
     Route: 065
  4. REMINYL [Suspect]
     Active Substance: GALANTAMINE
     Indication: PRODUCT USED FOR UNKNOWN INDICATION
     Route: 048

REACTIONS (3)
  - Oral discomfort [Unknown]
  - Haemorrhage subcutaneous [Unknown]
  - Dry mouth [Unknown]
